FAERS Safety Report 21811281 (Version 2)
Quarter: 2023Q2

REPORT INFORMATION
  Report Type: Spontaneous
  Country: US (occurrence: US)
  Receive Date: 20230103
  Receipt Date: 20230509
  Transmission Date: 20230721
  Serious: No
  Sender: FDA-Public Use
  Company Number: US-PFIZER INC-202200710513

PATIENT
  Age: 59 Year
  Sex: Female

DRUGS (1)
  1. XELJANZ [Suspect]
     Active Substance: TOFACITINIB CITRATE
     Dosage: 5 MG, 2X/DAY (SPLIT 10MG TABLETS TO TAKE 5MG 2 TIMES A DAY)
     Route: 048

REACTIONS (4)
  - Intentional dose omission [Unknown]
  - Peripheral swelling [Unknown]
  - Joint swelling [Unknown]
  - Malaise [Unknown]
